FAERS Safety Report 5273132-6 (Version None)
Quarter: 2007Q1

REPORT INFORMATION
  Report Type: 
  Country: None (occurrence: None)
  Receive Date: 20070322
  Receipt Date: 20070313
  Transmission Date: 20070707
  Serious: Yes (Death)
  Sender: FDA-Public Use
  Company Number: US-SANOFI-SYNTHELABO-A03200701982

PATIENT
  Sex: Male
  Weight: 115.19 kg

DRUGS (8)
  1. ASPIRIN [Concomitant]
     Dosage: UNK
     Route: 065
  2. CATAPRES [Concomitant]
     Dosage: UNK
     Route: 065
  3. COREG [Concomitant]
     Dosage: UNK
     Route: 065
  4. NORVASC [Concomitant]
     Dosage: UNK
     Route: 048
  5. SIMVASTATIN [Concomitant]
     Dosage: UNK
     Route: 065
  6. PROTONIX [Concomitant]
     Dosage: UNK
     Route: 065
  7. LASIX [Concomitant]
     Dosage: UNK
     Route: 065
  8. PLAVIX [Suspect]
     Indication: DRUG USE FOR UNKNOWN INDICATION
     Route: 048

REACTIONS (1)
  - DEATH [None]
